FAERS Safety Report 9825960 (Version 1)
Quarter: 2013Q4

REPORT INFORMATION
  Report Type: Spontaneous
  Country: US (occurrence: None)
  Receive Date: 20131223
  Receipt Date: 20131223
  Transmission Date: 20140711
  Serious: No
  Sender: FDA-Public Use
  Company Number: 219659LEO

PATIENT
  Sex: Male

DRUGS (2)
  1. PICATO [Suspect]
     Indication: SKIN DISORDER
     Route: 061
     Dates: start: 20121017, end: 20121019
  2. LISINOPRIL (LISINOPRIL) [Concomitant]

REACTIONS (6)
  - Application site erythema [None]
  - Application site exfoliation [None]
  - Drug ineffective [None]
  - Drug administration error [None]
  - Accidental overdose [None]
  - Drug administered at inappropriate site [None]
